FAERS Safety Report 25243702 (Version 1)
Quarter: 2025Q2

REPORT INFORMATION
  Report Type: Spontaneous
  Country: MX (occurrence: MX)
  Receive Date: 20250428
  Receipt Date: 20250428
  Transmission Date: 20250716
  Serious: Yes (Death, Hospitalization, Other)
  Sender: ASTELLAS
  Company Number: MX-ASTELLAS-2025-AER-023216

PATIENT
  Age: 30 Year
  Sex: Female

DRUGS (1)
  1. GILTERITINIB [Suspect]
     Active Substance: GILTERITINIB
     Indication: Product used for unknown indication
     Route: 048
     Dates: start: 202409

REACTIONS (6)
  - Death [Fatal]
  - Leukocytosis [Unknown]
  - Febrile neutropenia [Unknown]
  - Glossitis [Unknown]
  - Disease progression [Unknown]
  - Disease complication [Unknown]
